FAERS Safety Report 23171114 (Version 2)
Quarter: 2023Q4

REPORT INFORMATION
  Report Type: Report from Study
  Country: CA (occurrence: CA)
  Receive Date: 20231110
  Receipt Date: 20231214
  Transmission Date: 20240110
  Serious: Yes (Hospitalization, Other)
  Sender: FDA-Public Use
  Company Number: CA-Korea IPSEN-2022-18792

PATIENT
  Age: 67 Year
  Sex: Male

DRUGS (20)
  1. LANREOTIDE ACETATE [Suspect]
     Active Substance: LANREOTIDE ACETATE
     Indication: Gastroenteropancreatic neuroendocrine tumour disease
     Dosage: 90 MG, EVERY 4 WEEKS
     Route: 058
     Dates: start: 20191015
  2. VITAMIN D [Concomitant]
     Active Substance: VITAMIN D NOS
     Dosage: 10,000UI TAKE 1 TABLET ONCE A WEEK ON FRIDAY
  3. VITAMIN B12 [Concomitant]
     Active Substance: CYANOCOBALAMIN
     Dosage: 1000MCG 1 TABLET ONCE PER DAY
  4. TAMSULOSIN [Concomitant]
     Active Substance: TAMSULOSIN
     Dosage: 0.4MG CAPSULE LA 1 TABLET ONCE PER DAY
  5. ATORVASTATIN [Concomitant]
     Active Substance: ATORVASTATIN
     Dosage: 10MG TABLET , TAKE 1 TABLET IN THE EVENING AT BEDTIME
  6. PLAVIX [Concomitant]
     Active Substance: CLOPIDOGREL BISULFATE
  7. PREGABALIN [Concomitant]
     Active Substance: PREGABALIN
     Dosage: 50MG CAPSULE: 2 CAPSULES TWICE PER DAY
  8. LYRICA [Concomitant]
     Active Substance: PREGABALIN
  9. CANDESARTAN [Concomitant]
     Active Substance: CANDESARTAN
     Dosage: 8MG TABLET 1 TABLET PO IN THE EVENING AT BEDTIME
  10. CELEXA [Concomitant]
     Active Substance: CITALOPRAM HYDROBROMIDE
  11. SPORANOX [Concomitant]
     Active Substance: ITRACONAZOLE
  12. PRO-BISOPROLOL [Concomitant]
  13. ROCALTROL [Concomitant]
     Active Substance: CALCITRIOL
  14. TRAMADOL [Concomitant]
     Active Substance: TRAMADOL\TRAMADOL HYDROCHLORIDE
  15. CITALOPRAM [Concomitant]
     Active Substance: CITALOPRAM HYDROBROMIDE
     Dosage: 20MG TABLET, 1 TABLET PO ONCE DAILY
  16. CLOPIDOGREL [Concomitant]
     Active Substance: CLOPIDOGREL BISULFATE
     Dosage: 75MG TABLET, TAKE 1 TABLET ONCE DAILY
  17. PANTOPRAZOLE [Concomitant]
     Active Substance: PANTOPRAZOLE
     Dosage: 40MG TABLETS 2 TABLETS IN THE MORNING AND 1 TABLET AFTERNOON
  18. MAGNESIUM [Concomitant]
     Active Substance: MAGNESIUM
     Dosage: 500 MG TABLET, 2 TABLETS TWICE DAILY
  19. CARBOXYMETHYCELLULOSE [Concomitant]
     Dosage: 1 DROP IN BOTH EYES 4 TIMES DAILY EVERY 6 HOURS
  20. MOMETASONE [Concomitant]
     Active Substance: MOMETASONE

REACTIONS (11)
  - Parathyroid disorder [Unknown]
  - Dermatitis bullous [Unknown]
  - Hypertension [Not Recovered/Not Resolved]
  - Anxiety [Not Recovered/Not Resolved]
  - Depression [Not Recovered/Not Resolved]
  - Diarrhoea [Not Recovered/Not Resolved]
  - Abdominal pain lower [Not Recovered/Not Resolved]
  - Diarrhoea [Not Recovered/Not Resolved]
  - Nausea [Not Recovered/Not Resolved]
  - Product storage error [Unknown]
  - Off label use [Unknown]

NARRATIVE: CASE EVENT DATE: 20220620
